FAERS Safety Report 25391089 (Version 1)
Quarter: 2025Q2

REPORT INFORMATION
  Report Type: Spontaneous
  Country: US (occurrence: US)
  Receive Date: 20250603
  Receipt Date: 20250603
  Transmission Date: 20250716
  Serious: No
  Sender: DENDREON PHARMACEUTICALS LLC
  Company Number: US-DENDREON PHARMACEUTICAL LLC-2024DEN000324

PATIENT

DRUGS (2)
  1. PROVENGE [Suspect]
     Active Substance: SIPULEUCEL-T
     Indication: Prostate cancer metastatic
     Route: 042
     Dates: start: 20240916, end: 20240916
  2. PROVENGE [Suspect]
     Active Substance: SIPULEUCEL-T
     Route: 042
     Dates: start: 20240930, end: 20240930

REACTIONS (2)
  - Phlebitis [Recovering/Resolving]
  - Rash [Recovering/Resolving]

NARRATIVE: CASE EVENT DATE: 20241001
